FAERS Safety Report 6658841-6 (Version None)
Quarter: 2010Q1

REPORT INFORMATION
  Report Type: 
  Country: None (occurrence: None)
  Receive Date: 20100330
  Receipt Date: 20100310
  Transmission Date: 20100710
  Serious: No
  Sender: FDA-Public Use
  Company Number: US-BIOGENIDEC-2010BI008402

PATIENT
  Age: 56 Year
  Sex: Female

DRUGS (1)
  1. TYSABRI [Suspect]
     Indication: MULTIPLE SCLEROSIS
     Route: 042
     Dates: start: 20070629

REACTIONS (10)
  - BLOOD GLUCOSE FLUCTUATION [None]
  - FATIGUE [None]
  - GAIT DISTURBANCE [None]
  - INFLUENZA [None]
  - NAUSEA [None]
  - SINUSITIS [None]
  - TREMOR [None]
  - VIRAL INFECTION [None]
  - WEIGHT DECREASED [None]
  - WHEEZING [None]
